FAERS Safety Report 8365437-7 (Version None)
Quarter: 2012Q2

REPORT INFORMATION
  Report Type: 
  Country: None (occurrence: None)
  Receive Date: 20120516
  Receipt Date: 20120515
  Transmission Date: 20120825
  Serious: Yes (Other)
  Sender: FDA-Public Use
  Company Number: IL-PFIZER INC-2012093198

PATIENT
  Age: 32 Year
  Sex: Female

DRUGS (3)
  1. SERTRALINE HYDROCHLORIDE [Concomitant]
     Dosage: 200 MG, UNK
  2. GEODON [Suspect]
     Indication: SCHIZOPHRENIA
     Dosage: 40 MG IN THE MORNING AND 80 MG IN THE EVENING (DAILY DOSE 120 MG)
     Route: 048
  3. ASSIVAL [Concomitant]
     Dosage: 10 MG, UNK

REACTIONS (2)
  - HEADACHE [None]
  - INTENTIONAL OVERDOSE [None]
